FAERS Safety Report 8239559-5 (Version None)
Quarter: 2012Q1

REPORT INFORMATION
  Report Type: 
  Country: None (occurrence: None)
  Receive Date: 20120328
  Receipt Date: 20120326
  Transmission Date: 20120608
  Serious: No
  Sender: FDA-Public Use
  Company Number: US-PFIZER INC-2012053908

PATIENT
  Sex: Female
  Weight: 90.703 kg

DRUGS (4)
  1. PRAVACHOL [Suspect]
     Dosage: 80 MG, UNK
     Route: 048
  2. LISINOPRIL [Concomitant]
     Indication: HYPERTENSION
     Dosage: 5 MG, DAILY
  3. LIPITOR [Suspect]
     Indication: BLOOD CHOLESTEROL INCREASED
     Dosage: UNK
     Route: 048
     Dates: end: 20110101
  4. PRAVACHOL [Suspect]
     Indication: BLOOD CHOLESTEROL INCREASED
     Dosage: 40 MG, UNK
     Route: 048

REACTIONS (3)
  - GOUT [None]
  - BLOOD CHOLESTEROL INCREASED [None]
  - DRUG INTOLERANCE [None]
